FAERS Safety Report 9455162 (Version 4)
Quarter: 2013Q4

REPORT INFORMATION
  Report Type: Report from Study
  Country: FR (occurrence: FR)
  Receive Date: 20130813
  Receipt Date: 20131029
  Transmission Date: 20140711
  Serious: Yes (Hospitalization, Other)
  Sender: FDA-Public Use
  Company Number: FR-CELGENEUS-056-21880-13074503

PATIENT
  Age: 62 Year
  Sex: Female
  Weight: 63 kg

DRUGS (10)
  1. REVLIMID [Suspect]
     Indication: LYMPHOMA
     Dosage: 20 MILLIGRAM
     Route: 048
     Dates: start: 20130722
  2. REVLIMID [Suspect]
     Dosage: D9,10
     Route: 048
  3. REVLIMID [Suspect]
     Dosage: 20 MILLIGRAM
     Route: 048
     Dates: end: 20130807
  4. REVLIMID [Suspect]
     Dosage: 20 MILLIGRAM
     Route: 048
     Dates: start: 20130808
  5. RITUXIMAB [Suspect]
     Indication: LYMPHOMA
     Route: 065
     Dates: start: 20130721
  6. CYCLOPHOSPHAMIDE [Concomitant]
     Indication: LYMPHOMA
     Route: 065
  7. PREDNISOLONE [Concomitant]
     Indication: LYMPHOMA
     Route: 065
  8. VINCRISTINE [Concomitant]
     Indication: LYMPHOMA
     Route: 065
  9. ADRIAMYCIN [Concomitant]
     Indication: LYMPHOMA
     Route: 065
  10. BENDAMUSTINE [Concomitant]
     Indication: LYMPHOMA
     Route: 065

REACTIONS (3)
  - Bone marrow failure [Recovered/Resolved]
  - Dyspnoea [Recovered/Resolved]
  - Ascites [Recovered/Resolved]
